FAERS Safety Report 8021512-8 (Version None)
Quarter: 2011Q4

REPORT INFORMATION
  Report Type: 
  Country: None (occurrence: None)
  Receive Date: 20111229
  Receipt Date: 20111212
  Transmission Date: 20120403
  Serious: Yes (Other)
  Sender: FDA-Public Use
  Company Number: FK201103002

PATIENT
  Sex: Male

DRUGS (10)
  1. FERROUS FUMARATE [Concomitant]
  2. OMEPRAZOLE [Concomitant]
  3. METHOTREXATE [Suspect]
     Indication: RHEUMATOID ARTHRITIS
     Dates: start: 19991201, end: 20030601
  4. SPIRONOLACTONE (SPIRIONLACTONE) (SPIRONOLACTONE) [Concomitant]
  5. HYDROXYCHLOROQUINE (HYDROXYCHLOROQUINE) (HYDROXYCHLOROQUINE) [Concomitant]
  6. LACTULOSE (LACTULOSE) (LACTULOSE) [Concomitant]
  7. CALCICHEW D3 (LEKOVIT CA) (LEKOVIT CA) [Concomitant]
  8. PROPRANOLOL [Concomitant]
  9. HYDROCORTISONE [Concomitant]
  10. RISEDRONATE (RISEDRONATE SODIUM) (RISEDRONATE SODIUM) [Concomitant]

REACTIONS (2)
  - LIVER FUNCTION TEST ABNORMAL [None]
  - NODULAR REGENERATIVE HYPERPLASIA [None]
